FAERS Safety Report 16154497 (Version 2)
Quarter: 2019Q2

REPORT INFORMATION
  Report Type: Report from Study
  Country: US (occurrence: US)
  Receive Date: 20190403
  Receipt Date: 20190503
  Transmission Date: 20190711
  Serious: Yes (Other)
  Sender: FDA-Public Use
  Company Number: US-MALLINCKRODT-T201801274

PATIENT
  Age: 77 Year
  Sex: Female

DRUGS (9)
  1. REPOSITORY CORTICOTROPIN INJECTION [Suspect]
     Active Substance: CORTICOTROPIN
     Indication: UVEITIS
     Dosage: 80 UNITS/1 ML, 2 TIMES PER WEEK (TUESDAY/SATURDAY)
     Route: 058
     Dates: start: 20180323, end: 201808
  2. REPOSITORY CORTICOTROPIN INJECTION [Suspect]
     Active Substance: CORTICOTROPIN
     Dosage: 40 UNITS / .5 ML, 2 TIMES PER WEEK, (TUESDAY/SATURDAY)
     Route: 058
  3. PREDNISONE. [Concomitant]
     Active Substance: PREDNISONE
     Indication: PRODUCT USED FOR UNKNOWN INDICATION
     Dosage: UNK
     Route: 065
  4. REPOSITORY CORTICOTROPIN INJECTION [Suspect]
     Active Substance: CORTICOTROPIN
     Dosage: 40 UNITS / .5 ML 2 TIMES PER WEEK  TUESDAY/SATURDAY
     Route: 058
     Dates: start: 2018
  5. VALACYCLOVIR [Concomitant]
     Active Substance: VALACYCLOVIR HYDROCHLORIDE
     Indication: PRODUCT USED FOR UNKNOWN INDICATION
     Dosage: UNK
     Route: 065
  6. REPOSITORY CORTICOTROPIN INJECTION [Suspect]
     Active Substance: CORTICOTROPIN
     Dosage: 80 UNITS / 1 ML 2 TIMES PER WEEK  TUESDAY/SATURDAY
     Route: 058
  7. COMBIGAN [Concomitant]
     Active Substance: BRIMONIDINE TARTRATE\TIMOLOL MALEATE
     Indication: GLAUCOMA
     Dosage: UNK
     Route: 065
  8. REPOSITORY CORTICOTROPIN INJECTION [Suspect]
     Active Substance: CORTICOTROPIN
     Indication: IRIDOCYCLITIS
     Dosage: 40 UNITS/0.5 ML, 2 TIMES PER WEEK (TUESDAY/SATURDAY)
     Route: 058
     Dates: start: 201808, end: 2018
  9. PRED FORTE [Concomitant]
     Active Substance: PREDNISOLONE ACETATE
     Indication: PRODUCT USED FOR UNKNOWN INDICATION
     Dosage: UNK
     Route: 065

REACTIONS (20)
  - Glare [Unknown]
  - Arthralgia [Unknown]
  - Injection site bruising [Unknown]
  - Blood glucose increased [Unknown]
  - Polypectomy [Unknown]
  - Glaucoma surgery [Recovering/Resolving]
  - Polyp [Unknown]
  - Expired product administered [Unknown]
  - Malaise [Unknown]
  - Drug ineffective [Unknown]
  - Uveitis [Not Recovered/Not Resolved]
  - Post procedural complication [Not Recovered/Not Resolved]
  - Bronchitis [Recovering/Resolving]
  - Dry eye [Not Recovered/Not Resolved]
  - Cough [Unknown]
  - Product dose omission [Unknown]
  - Corneal epithelial microcysts [Not Recovered/Not Resolved]
  - Blood pressure increased [Unknown]
  - Immunodeficiency [Unknown]
  - Fatigue [Unknown]

NARRATIVE: CASE EVENT DATE: 2018
